FAERS Safety Report 7636201-9 (Version None)
Quarter: 2011Q3

REPORT INFORMATION
  Report Type: 
  Country: None (occurrence: None)
  Receive Date: 20110726
  Receipt Date: 20110713
  Transmission Date: 20111222
  Serious: Yes (Other)
  Sender: FDA-Public Use
  Company Number: DE-GENENTECH-320924

PATIENT
  Age: 15 Year
  Sex: Male
  Weight: 58 kg

DRUGS (3)
  1. ALBUTEROL [Concomitant]
     Indication: PRODUCT USED FOR UNKNOWN INDICATION
  2. VENTOLAIR [Concomitant]
     Indication: PRODUCT USED FOR UNKNOWN INDICATION
  3. XOLAIR [Suspect]
     Indication: PRODUCT USED FOR UNKNOWN INDICATION
     Dosage: 300 MG, 1/MONTH
     Route: 058
     Dates: start: 20080101

REACTIONS (2)
  - PAROTITIS [None]
  - SJOGREN'S SYNDROME [None]
